FAERS Safety Report 8809437 (Version 1)
Quarter: 2012Q4

REPORT INFORMATION
  Report Type: 
  Country: FR (occurrence: FR)
  Receive Date: 20120926
  Receipt Date: 20120926
  Transmission Date: 20130627
  Serious: Yes (Hospitalization)
  Sender: FDA-Public Use
  Company Number: FR-ROCHE-1127156

PATIENT
  Age: 57 Year
  Sex: Male

DRUGS (15)
  1. RIVOTRIL [Suspect]
     Indication: EPILEPSY
     Route: 048
     Dates: end: 20120504
  2. VFEND [Suspect]
     Indication: ASPERGILLOSIS
     Route: 048
     Dates: end: 20120504
  3. TAVANIC [Suspect]
     Indication: LUNG INFECTION
     Route: 048
     Dates: end: 20120506
  4. RANIPLEX [Suspect]
     Indication: PRODUCT USED FOR UNKNOWN INDICATION
     Route: 048
     Dates: end: 20120504
  5. ENTOCORT [Suspect]
     Indication: CROHN^S DISEASE
     Route: 048
     Dates: end: 20120504
  6. ATARAX [Suspect]
     Indication: ANXIETY
     Route: 048
     Dates: end: 20120504
  7. SPECIAFOLDINE [Suspect]
     Indication: ANAEMIA
     Route: 048
     Dates: end: 20120504
  8. NOXAFIL [Concomitant]
     Indication: ASPERGILLOSIS
     Route: 048
     Dates: start: 20120504
  9. ZELITREX [Concomitant]
     Indication: ANTIVIRAL PROPHYLAXIS
     Route: 048
  10. TRIATEC [Concomitant]
     Indication: ISCHAEMIC HEART DISEASE PROPHYLAXIS
     Route: 048
  11. CARDENSIEL [Concomitant]
     Indication: CARDIAC FAILURE
     Route: 048
  12. CORTANCYL [Concomitant]
     Route: 048
     Dates: end: 20120504
  13. SOLU-MEDROL [Concomitant]
     Route: 042
     Dates: start: 20120504, end: 20120524
  14. INEXIUM [Concomitant]
     Indication: GASTROOESOPHAGEAL REFLUX DISEASE
     Route: 048
  15. BACTRIM FORTE [Concomitant]
     Indication: LUNG INFECTION
     Route: 048

REACTIONS (3)
  - Thrombotic microangiopathy [Recovered/Resolved]
  - Epilepsy [Recovered/Resolved]
  - General physical health deterioration [Recovered/Resolved]
